FAERS Safety Report 8912456 (Version 1)
Quarter: 2012Q4

REPORT INFORMATION
  Report Type: Report from Study
  Country: BR (occurrence: BR)
  Receive Date: 20121116
  Receipt Date: 20121116
  Transmission Date: 20130627
  Serious: Yes (Other)
  Sender: FDA-Public Use
  Company Number: BR-ABBOTT-12P-020-1006553-00

PATIENT
  Sex: Male
  Weight: 77 kg

DRUGS (2)
  1. HUMIRA [Suspect]
     Indication: RHEUMATOID ARTHRITIS
     Route: 058
  2. LEFLUNOMIDE [Concomitant]
     Indication: ARTHRITIS
     Route: 048
     Dates: start: 201205

REACTIONS (1)
  - Abdominal hernia [Recovered/Resolved]
